FAERS Safety Report 8014978-0 (Version None)
Quarter: 2011Q4

REPORT INFORMATION
  Report Type: 
  Country: None (occurrence: None)
  Receive Date: 20111230
  Receipt Date: 20111222
  Transmission Date: 20120403
  Serious: Yes (Hospitalization)
  Sender: FDA-Public Use
  Company Number: US-BIOGENIDEC-2011BI043804

PATIENT
  Age: 52 Year
  Sex: Male

DRUGS (1)
  1. TYSABRI [Suspect]
     Indication: MULTIPLE SCLEROSIS
     Route: 042
     Dates: start: 20100423, end: 20110819

REACTIONS (6)
  - AMPUTATION REVISION [None]
  - PROCEDURAL PAIN [None]
  - CELLULITIS [None]
  - MULTIPLE SCLEROSIS [None]
  - STRESS [None]
  - ANGER [None]
